FAERS Safety Report 7047468-2 (Version None)
Quarter: 2010Q4

REPORT INFORMATION
  Report Type: 
  Country: None (occurrence: None)
  Receive Date: 20101015
  Receipt Date: 20101004
  Transmission Date: 20110411
  Serious: Yes (Other)
  Sender: FDA-Public Use
  Company Number: ES-WATSON-2010-13482

PATIENT
  Age: 78 Year
  Sex: Female

DRUGS (2)
  1. OMEPRAZOLE (WATSON LABORATORIES) [Suspect]
     Indication: DUODENAL ULCER
     Dosage: UNK
  2. FORTAMET [Suspect]
     Indication: BLOOD GLUCOSE INCREASED
     Dosage: 2550 MG, DAILY

REACTIONS (1)
  - VITAMIN B12 DEFICIENCY [None]
